FAERS Safety Report 4576584-X (Version None)
Quarter: 2005Q1

REPORT INFORMATION
  Report Type: 
  Country: None (occurrence: None)
  Receive Date: 20050119
  Receipt Date: 20041012
  Transmission Date: 20050727
  Serious: Yes (Hospitalization)
  Sender: FDA-Public Use
  Company Number: A03200403429

PATIENT
  Age: 67 Year
  Sex: Male
  Weight: 78.4723 kg

DRUGS (10)
  1. PLAVIX [Suspect]
     Indication: STENT PLACEMENT
     Dosage: 75 MG QD - ORAL
     Route: 048
     Dates: start: 20010601
  2. ACETYLSALICYLIC ACID [Concomitant]
  3. ATORVASTATIN [Concomitant]
  4. RAMIPRIL [Concomitant]
  5. METOPROLOL [Concomitant]
  6. FINASTERIDE [Concomitant]
  7. NICOTINIC ACID [Concomitant]
  8. VITAMIN E [Concomitant]
  9. FISH OIL [Concomitant]
  10. LEVOTHYROXINE SODIUM [Concomitant]

REACTIONS (3)
  - HAEMOGLOBIN DECREASED [None]
  - PROSTATIC HAEMORRHAGE [None]
  - SKIN HAEMORRHAGE [None]
